FAERS Safety Report 16158401 (Version 4)
Quarter: 2019Q3

REPORT INFORMATION
  Report Type: Spontaneous
  Country: DE (occurrence: DE)
  Receive Date: 20190404
  Receipt Date: 20190710
  Transmission Date: 20191004
  Serious: Yes (Hospitalization, Other)
  Sender: FDA-Public Use
  Company Number: DE-B.I. PHARMACEUTICALS,INC./RIDGEFIELD-2019-BI-015526

PATIENT
  Age: 75 Year
  Sex: Female

DRUGS (9)
  1. JARDIANCE [Suspect]
     Active Substance: EMPAGLIFLOZIN
     Indication: TYPE 2 DIABETES MELLITUS
     Route: 048
  2. BISOPROLOL [Concomitant]
     Active Substance: BISOPROLOL
     Indication: PRODUCT USED FOR UNKNOWN INDICATION
     Route: 065
  3. TORASEMID ABZ [Concomitant]
     Indication: PRODUCT USED FOR UNKNOWN INDICATION
     Route: 065
  4. RAMIPRIL HEXAL [Concomitant]
     Active Substance: RAMIPRIL
     Indication: PRODUCT USED FOR UNKNOWN INDICATION
     Route: 065
  5. VELMETIA [Concomitant]
     Active Substance: METFORMIN\SITAGLIPTIN
     Indication: PRODUCT USED FOR UNKNOWN INDICATION
     Dosage: FORM STRENGTH:  50 MG/1000 MG
     Route: 065
  6. VITAGAMMA [Concomitant]
     Indication: PRODUCT USED FOR UNKNOWN INDICATION
     Route: 065
  7. ASPIRIN. [Concomitant]
     Active Substance: ASPIRIN
     Indication: PRODUCT USED FOR UNKNOWN INDICATION
     Route: 065
  8. ALENDRONSAEURE BASICS [Concomitant]
     Indication: PRODUCT USED FOR UNKNOWN INDICATION
     Route: 065
  9. ATORVASTATIN HEXAL [Concomitant]
     Active Substance: ATORVASTATIN
     Indication: PRODUCT USED FOR UNKNOWN INDICATION
     Route: 065

REACTIONS (21)
  - Disturbance in attention [Unknown]
  - Glycosylated haemoglobin abnormal [Unknown]
  - Acute kidney injury [Unknown]
  - Hypothermia [Unknown]
  - Candida infection [Unknown]
  - Pneumonia [Unknown]
  - Hiatus hernia [Unknown]
  - Hypernatraemia [Unknown]
  - Pneumonia aspiration [Unknown]
  - Diabetes mellitus inadequate control [Unknown]
  - Rhabdomyolysis [Unknown]
  - Pancreatitis [Unknown]
  - Hypokalaemia [Unknown]
  - Dysphagia [Unknown]
  - Ketoacidosis [Recovered/Resolved]
  - Metabolic acidosis [Unknown]
  - Hypovolaemia [Unknown]
  - Delirium [Unknown]
  - Gastritis [Unknown]
  - Blood glucose increased [Unknown]
  - Chronic gastritis [Unknown]

NARRATIVE: CASE EVENT DATE: 2019
